FAERS Safety Report 22130292 (Version 1)
Quarter: 2023Q1

REPORT INFORMATION
  Report Type: Spontaneous
  Country: US (occurrence: None)
  Receive Date: 20230322
  Receipt Date: 20230322
  Transmission Date: 20230417
  Serious: Yes (Other)
  Sender: FDA-Public Use
  Company Number: None

PATIENT
  Age: 88 Year
  Sex: Female
  Weight: 47.25 kg

DRUGS (7)
  1. CEFAZOLIN [Suspect]
     Active Substance: CEFAZOLIN
     Indication: Staphylococcal bacteraemia
     Dates: start: 20230203, end: 20230313
  2. CEPHALEXIN [Concomitant]
     Active Substance: CEPHALEXIN
     Dates: start: 20230205, end: 20230313
  3. VANCOMYCIN [Concomitant]
     Active Substance: VANCOMYCIN
     Dates: start: 20230210, end: 20230213
  4. DAPTOMYCIN [Concomitant]
     Active Substance: DAPTOMYCIN
     Dates: start: 20230213, end: 20230221
  5. CEFTAROLINE [Suspect]
     Active Substance: CEFTAROLINE
  6. CEFTRIAXONE [Suspect]
     Active Substance: CEFTRIAXONE
  7. DOXYCYCLINE [Suspect]
     Active Substance: DOXYCYCLINE

REACTIONS (10)
  - Postoperative wound infection [None]
  - Staphylococcal bacteraemia [None]
  - Rash [None]
  - Pruritus [None]
  - Rash morbilliform [None]
  - Renal impairment [None]
  - Dehydration [None]
  - Dry skin [None]
  - Skin exfoliation [None]
  - Swelling face [None]

NARRATIVE: CASE EVENT DATE: 20230222
